FAERS Safety Report 15142095 (Version 1)
Quarter: 2018Q3

REPORT INFORMATION
  Report Type: Report from Study
  Country: RU (occurrence: RU)
  Receive Date: 20180713
  Receipt Date: 20180713
  Transmission Date: 20181010
  Serious: Yes (Other)
  Sender: FDA-Public Use
  Company Number: RU-ASTRAZENECA-2018SE88388

PATIENT
  Age: 69 Year
  Sex: Female
  Weight: 58 kg

DRUGS (4)
  1. SYMBICORT [Suspect]
     Active Substance: BUDESONIDE\FORMOTEROL FUMARATE DIHYDRATE
     Indication: ASTHMA
     Dosage: 2 INHALATIONS TWICE A DAY
     Route: 055
  2. AMBROXOL [Concomitant]
     Active Substance: AMBROXOL
  3. BENDAZOL + PAPAVERINE [Concomitant]
  4. SYMBICORT [Suspect]
     Active Substance: BUDESONIDE\FORMOTEROL FUMARATE DIHYDRATE
     Indication: CHRONIC OBSTRUCTIVE PULMONARY DISEASE
     Dosage: 2 INHALATIONS TWICE A DAY
     Route: 055

REACTIONS (2)
  - Pneumothorax [Recovered/Resolved]
  - Suspected counterfeit product [Unknown]
